FAERS Safety Report 5380276-7 (Version None)
Quarter: 2007Q2

REPORT INFORMATION
  Report Type: 
  Country: None (occurrence: None)
  Receive Date: 20070530
  Receipt Date: 20070307
  Transmission Date: 20071010
  Serious: No
  Sender: FDA-Public Use
  Company Number: 2007PV031302

PATIENT
  Age: 55 Year
  Sex: Female

DRUGS (4)
  1. BYETTA [Suspect]
     Indication: DIABETES MELLITUS NON-INSULIN-DEPENDENT
     Dosage: 5 MCG;BID SC; 10 MCG;BID;SC; 5 MCG;BID; SC
     Route: 058
     Dates: start: 20070201, end: 20070227
  2. BYETTA [Suspect]
     Indication: DIABETES MELLITUS NON-INSULIN-DEPENDENT
     Dosage: 5 MCG;BID SC; 10 MCG;BID;SC; 5 MCG;BID; SC
     Route: 058
     Dates: start: 20070228, end: 20070306
  3. BYETTA [Suspect]
     Indication: DIABETES MELLITUS NON-INSULIN-DEPENDENT
     Dosage: 5 MCG;BID SC; 10 MCG;BID;SC; 5 MCG;BID; SC
     Route: 058
     Dates: start: 20070307
  4. METFORMIN HCL [Concomitant]

REACTIONS (2)
  - NASOPHARYNGITIS [None]
  - NAUSEA [None]
